FAERS Safety Report 8903481 (Version 1)
Quarter: 2012Q4

REPORT INFORMATION
  Report Type: 
  Country: DE (occurrence: DE)
  Receive Date: 20121113
  Receipt Date: 20121113
  Transmission Date: 20130627
  Serious: Yes (Hospitalization)
  Sender: FDA-Public Use
  Company Number: GXKR2012DE003476

PATIENT
  Sex: Female

DRUGS (4)
  1. TRIAMHEXAL [Suspect]
     Indication: BACK PAIN
     Dosage: 80 mg, QD
     Dates: start: 20120713, end: 20120713
  2. TRIAMHEXAL [Suspect]
     Dosage: 80 mg, QD
     Dates: start: 20120727, end: 20120727
  3. TRIAMHEXAL [Suspect]
     Dosage: 80 mg, QD
     Dates: start: 20120911, end: 20120911
  4. TRIAMHEXAL [Suspect]
     Dosage: 80 mg, QD
     Dates: start: 20120927, end: 20120927

REACTIONS (3)
  - Gait disturbance [Unknown]
  - Fall [Unknown]
  - Nausea [Unknown]
